FAERS Safety Report 12837171 (Version 2)
Quarter: 2016Q4

REPORT INFORMATION
  Report Type: Report from Study
  Country: US (occurrence: US)
  Receive Date: 20161011
  Receipt Date: 20161207
  Transmission Date: 20170207
  Serious: Yes (Hospitalization)
  Sender: FDA-Public Use
  Company Number: US-ACTELION-A-US2016-143397

PATIENT
  Age: 72 Year
  Sex: Female

DRUGS (9)
  1. NEPHRO-VITE [Concomitant]
  2. ALLOPURINOL. [Concomitant]
     Active Substance: ALLOPURINOL
     Dosage: UNK
  3. ATORVASTATIN [Concomitant]
     Active Substance: ATORVASTATIN
  4. AMOXICILLIN. [Concomitant]
     Active Substance: AMOXICILLIN
  5. OPSUMIT [Suspect]
     Active Substance: MACITENTAN
     Indication: PULMONARY ARTERIAL HYPERTENSION
     Dosage: 10 MG, QD
     Route: 048
     Dates: start: 20140827
  6. PAROXETINE. [Concomitant]
     Active Substance: PAROXETINE
     Dosage: 300 MG, UNK
  7. ATENOLOL. [Concomitant]
     Active Substance: ATENOLOL
  8. METOLAZONE. [Concomitant]
     Active Substance: METOLAZONE
  9. HYDROCHLOROTH [Concomitant]
     Active Substance: HYDROCHLOROTHIAZIDE

REACTIONS (2)
  - Infection [Recovered/Resolved]
  - Sepsis [Unknown]

NARRATIVE: CASE EVENT DATE: 20160922
